FAERS Safety Report 6116398-2 (Version None)
Quarter: 2009Q1

REPORT INFORMATION
  Report Type: 
  Country: None (occurrence: None)
  Receive Date: 20090314
  Receipt Date: 20081207
  Transmission Date: 20090719
  Serious: No
  Sender: FDA-Public Use
  Company Number: US-ABBOTT-08P-163-0492106-00

PATIENT
  Sex: Female

DRUGS (2)
  1. HUMIRA [Suspect]
     Indication: PSORIATIC ARTHROPATHY
     Dates: start: 20060725
  2. HUMIRA [Suspect]
     Indication: PSORIASIS

REACTIONS (3)
  - EAR INFECTION [None]
  - SINUS CONGESTION [None]
  - SINUSITIS [None]
